FAERS Safety Report 8920000 (Version 2)
Quarter: 2013Q1

REPORT INFORMATION
  Report Type: Report from Study
  Country: FR (occurrence: FR)
  Receive Date: 20121121
  Receipt Date: 20130221
  Transmission Date: 20140127
  Serious: Yes (Other)
  Sender: FDA-Public Use
  Company Number: FR-BRISTOL-MYERS SQUIBB COMPANY-17128307

PATIENT
  Age: 77 Year
  Sex: Female
  Weight: 84 kg

DRUGS (3)
  1. ORENCIA FOR INJ [Suspect]
     Indication: RHEUMATOID ARTHRITIS
     Route: 042
     Dates: start: 20120521
  2. CORTANCYL [Suspect]
     Indication: RHEUMATOID ARTHRITIS
     Route: 048
     Dates: start: 201209
  3. OROKEN [Concomitant]

REACTIONS (3)
  - Skin ulcer [Recovered/Resolved]
  - Urinary tract infection [Recovered/Resolved]
  - Escherichia urinary tract infection [Recovered/Resolved]
